FAERS Safety Report 13078830 (Version 1)
Quarter: 2017Q1

REPORT INFORMATION
  Report Type: Spontaneous
  Country: US (occurrence: US)
  Receive Date: 20170102
  Receipt Date: 20170102
  Transmission Date: 20170428
  Serious: No
  Sender: FDA-Public Use
  Company Number: US-ASTRAZENECA-2016SF35175

PATIENT
  Sex: Female

DRUGS (3)
  1. METOPROLOL SUCCINATE. [Suspect]
     Active Substance: METOPROLOL SUCCINATE
     Indication: VENTRICULAR EXTRASYSTOLES
     Route: 048
     Dates: start: 201601
  2. METOPROLOL SUCCINATE. [Suspect]
     Active Substance: METOPROLOL SUCCINATE
     Indication: BLOOD PRESSURE ABNORMAL
     Route: 048
     Dates: start: 201601
  3. AMLODIPINE [Concomitant]
     Active Substance: AMLODIPINE BESYLATE
     Indication: BLOOD PRESSURE ABNORMAL

REACTIONS (9)
  - Heart rate decreased [Unknown]
  - Condition aggravated [Unknown]
  - Weight decreased [Unknown]
  - Blood pressure inadequately controlled [Unknown]
  - Intentional product misuse [Unknown]
  - Blood cholesterol increased [Unknown]
  - Hypokinesia [Unknown]
  - Off label use [Unknown]
  - Product use issue [Unknown]
